FAERS Safety Report 9520103 (Version 2)
Quarter: 2013Q3

REPORT INFORMATION
  Report Type: Spontaneous
  Country: NL (occurrence: NL)
  Receive Date: 20130912
  Receipt Date: 20130912
  Transmission Date: 20140515
  Serious: Yes (Disabling)
  Sender: FDA-Public Use
  Company Number: PHHY2013NL083834

PATIENT
  Sex: Male

DRUGS (8)
  1. TOBI PODHALER [Suspect]
     Indication: RESPIRATORY TRACT INFECTION
     Dosage: 28 MG, UNK, 2 DD1
     Dates: start: 20130731, end: 20130731
  2. ONBREZ [Concomitant]
     Dosage: 300 MG, QD
  3. SPIRIVA [Concomitant]
     Dosage: 18 UG, QD
  4. ACETYL CYSTEINE [Concomitant]
     Dosage: 600 MG, QD
  5. AZITHROMYCINE [Concomitant]
     Dosage: 250 MG, 1 PER WEEK
  6. CALCICHEW D3 [Concomitant]
     Dosage: UNK 500/800, QD
  7. ALENDRONIC ACID [Concomitant]
     Dosage: 70 MG, 1 PER WEEK 1
  8. LUCRIN [Concomitant]
     Dosage: UNK UKN, 1 PER MONTH

REACTIONS (5)
  - Oxygen saturation decreased [Not Recovered/Not Resolved]
  - Dyspnoea [Not Recovered/Not Resolved]
  - Gait disturbance [Unknown]
  - Chest discomfort [Unknown]
  - Forced expiratory volume decreased [Unknown]
